FAERS Safety Report 4592847-6 (Version None)
Quarter: 2005Q1

REPORT INFORMATION
  Report Type: 
  Country: None (occurrence: None)
  Receive Date: 20050228
  Receipt Date: 20050112
  Transmission Date: 20050727
  Serious: Yes (Life-Threatening)
  Sender: FDA-Public Use
  Company Number: DE-ROCHE-392234

PATIENT
  Age: 48 Year
  Sex: Male
  Weight: 73 kg

DRUGS (2)
  1. PEG-INTERFERON ALFA 2A (RO 25-8310) [Suspect]
     Route: 058
     Dates: start: 20040809, end: 20040908
  2. RIBAVIRIN [Suspect]
     Route: 048
     Dates: start: 20040809, end: 20040908

REACTIONS (1)
  - OESOPHAGEAL VARICES HAEMORRHAGE [None]
